FAERS Safety Report 5562637-6 (Version None)
Quarter: 2007Q4

REPORT INFORMATION
  Report Type: 
  Country: None (occurrence: None)
  Receive Date: 20071217
  Receipt Date: 20071205
  Transmission Date: 20080405
  Serious: Yes (Hospitalization)
  Sender: FDA-Public Use
  Company Number: US-BRISTOL-MYERS SQUIBB COMPANY-14014393

PATIENT
  Age: 74 Year
  Sex: Male

DRUGS (23)
  1. PRINIVIL [Suspect]
     Indication: DIABETES MELLITUS
     Dates: start: 20050203, end: 20070122
  2. PRINIVIL [Suspect]
     Indication: HYPERTENSION
     Dates: start: 20050203, end: 20070122
  3. FOSINOPRIL SODIUM [Suspect]
     Indication: HYPERTENSION
     Dates: start: 20070122, end: 20070127
  4. FOSINOPRIL SODIUM [Suspect]
     Indication: DIABETES MELLITUS
     Dates: start: 20070122, end: 20070127
  5. CELLUVISC [Concomitant]
  6. HYDROCHLOROTHIAZIDE W/TRIAMTERENE [Concomitant]
  7. AMMONIUM LACTATE [Concomitant]
  8. ASPIRIN [Concomitant]
  9. MENTHOL + CAMPHOR [Concomitant]
  10. CARBAMAZEPINE [Concomitant]
  11. CYCLOBENZAPRINE HCL [Concomitant]
  12. DOCUSATE SODIUM [Concomitant]
  13. DORZOLAMIDE HCL TIMOLOL MALEATE [Concomitant]
  14. FINASTERIDE [Concomitant]
  15. INSULIN HUMAN [Concomitant]
  16. INSULIN HUMAN + ISOPHANE INSULIN HUMAN [Concomitant]
  17. METOPROLOL SUCCINATE [Concomitant]
  18. NITROGLYCERIN [Concomitant]
  19. OMEPRAZOLE [Concomitant]
  20. POLYVINYL ALCOHOL [Concomitant]
  21. RANITIDINE HCL [Concomitant]
  22. SPIRONOLACTONE [Concomitant]
  23. TIMOLOL MALEATE [Concomitant]

REACTIONS (8)
  - BLOOD PRESSURE INCREASED [None]
  - CONFUSIONAL STATE [None]
  - DRUG HYPERSENSITIVITY [None]
  - ELECTROCARDIOGRAM T WAVE ABNORMAL [None]
  - HYDRONEPHROSIS [None]
  - HYPERKALAEMIA [None]
  - OBSTRUCTION [None]
  - RENAL FAILURE ACUTE [None]
